FAERS Safety Report 7032807-9 (Version None)
Quarter: 2010Q4

REPORT INFORMATION
  Report Type: 
  Country: None (occurrence: None)
  Receive Date: 20101005
  Receipt Date: 20100923
  Transmission Date: 20110411
  Serious: Yes (Other)
  Sender: FDA-Public Use
  Company Number: 1000016539

PATIENT
  Age: 18 Year
  Sex: Female

DRUGS (4)
  1. ESCITALOPRAM [Suspect]
     Dosage: 40 MG (40 MG, ONCE), ORAL
     Route: 048
     Dates: start: 20100923, end: 20100923
  2. L-THYROXIN (LEVOTHYROXINE SODIUM) (50 MICROGRAM, TABLETS) [Suspect]
     Dosage: 150-200 MCG (ONLCE), ORAL
     Route: 048
     Dates: start: 20100923, end: 20100923
  3. BENURON (PARACETAMOL) (50 MILLIGRAM, TABLETS) [Suspect]
     Dosage: 1500 MG (1500 MG, ONCE), ORAL
     Route: 048
     Dates: start: 20100923, end: 20100923
  4. VALETTE (CERTOSTAT) (TABLETS) [Suspect]
     Dosage: 1 DF (1 DOSAGE FORMS, ONCE), ORAL
     Route: 048
     Dates: start: 20100923, end: 20100923

REACTIONS (4)
  - DEPRESSION [None]
  - DRUG ABUSE [None]
  - INTENTIONAL OVERDOSE [None]
  - NAUSEA [None]
